FAERS Safety Report 22532197 (Version 1)
Quarter: 2023Q2

REPORT INFORMATION
  Report Type: Spontaneous
  Country: US (occurrence: US)
  Receive Date: 20230607
  Receipt Date: 20230607
  Transmission Date: 20230721
  Serious: Yes (Other)
  Sender: FDA-Public Use
  Company Number: US-MYLANLABS-2023M1059105

PATIENT
  Age: 49 Year
  Sex: Male

DRUGS (1)
  1. TEMOZOLOMIDE [Suspect]
     Active Substance: TEMOZOLOMIDE
     Indication: Oligoastrocytoma
     Dosage: 200 MILLIGRAM/SQ. METER, CYCLE, SCHEDULED TO RECEIVED PER DAY FOR 8 CYCLES
     Route: 065
     Dates: start: 2013

REACTIONS (2)
  - Drug ineffective [Unknown]
  - Disease progression [Unknown]
